FAERS Safety Report 21468109 (Version 2)
Quarter: 2022Q4

REPORT INFORMATION
  Report Type: Spontaneous
  Country: US (occurrence: US)
  Receive Date: 20221017
  Receipt Date: 20221017
  Transmission Date: 20230113
  Serious: No
  Sender: FDA-Public Use
  Company Number: US-ALLERGAN-2209941US

PATIENT
  Sex: Female
  Weight: 69.841 kg

DRUGS (10)
  1. LINZESS [Suspect]
     Active Substance: LINACLOTIDE
     Indication: Constipation
     Dosage: DISPENSED ON 10-MAY-2021, 72 MCG
  2. LINZESS [Suspect]
     Active Substance: LINACLOTIDE
     Indication: Constipation
     Dosage: DISPENSED ON 19-MAY-2022
  3. LINZESS [Suspect]
     Active Substance: LINACLOTIDE
     Dosage: 145 MCG DAILY, DISPENSED ON 14-APR-2022
  4. LINZESS [Suspect]
     Active Substance: LINACLOTIDE
     Dosage: REPLACEMENT BOTTLE
  5. LINZESS [Suspect]
     Active Substance: LINACLOTIDE
     Dosage: 145 MCG DAILY, DISPENSED ON 16-MAR-2022
     Dates: start: 20220318, end: 20220322
  6. LINZESS [Suspect]
     Active Substance: LINACLOTIDE
     Dosage: DISPENSED ON 18-FEB-2022
  7. LINZESS [Suspect]
     Active Substance: LINACLOTIDE
     Dosage: DISPENSED ON 23-JAN-2022
  8. LINZESS [Suspect]
     Active Substance: LINACLOTIDE
     Dosage: DISPENSED ON DEC-2021
  9. ARMOUR THYROID [Concomitant]
     Active Substance: THYROID, PORCINE
     Indication: Hypothyroidism
     Dosage: 60 MG DAILY
  10. PROGESTERONE [Concomitant]
     Active Substance: PROGESTERONE
     Indication: Hormone level abnormal
     Dosage: 100 MG DAILY

REACTIONS (1)
  - Therapeutic product effect incomplete [Unknown]
